FAERS Safety Report 6636524-6 (Version None)
Quarter: 2010Q1

REPORT INFORMATION
  Report Type: 
  Country: None (occurrence: None)
  Receive Date: 20100310
  Receipt Date: 20100222
  Transmission Date: 20100710
  Serious: Yes (Hospitalization)
  Sender: FDA-Public Use
  Company Number: DSA_42705_2010

PATIENT
  Age: 78 Year
  Sex: Male

DRUGS (2)
  1. HERBESSER R (HERBESSER R (HERBESSER R - DILTIAZEM HYDROCHLORIDE) ) 100 [Suspect]
     Indication: DRUG USE FOR UNKNOWN INDICATION
     Dosage: (DF ORAL)
     Route: 048
     Dates: end: 20100211
  2. SUNRYTH, (SUNRYTHM) (NOT SPECIFIED) [Suspect]
     Indication: DRUG USE FOR UNKNOWN INDICATION
     Dosage: (DF)
     Dates: end: 20100211

REACTIONS (1)
  - SICK SINUS SYNDROME [None]
